FAERS Safety Report 19057943 (Version 1)
Quarter: 2021Q1

REPORT INFORMATION
  Report Type: Spontaneous
  Country: US (occurrence: US)
  Receive Date: 20210325
  Receipt Date: 20210325
  Transmission Date: 20210420
  Serious: Yes (Other)
  Sender: FDA-Public Use
  Company Number: US-PFIZER INC-2021287280

PATIENT
  Age: 39 Year
  Sex: Female

DRUGS (12)
  1. EPINEPHRINE. [Suspect]
     Active Substance: EPINEPHRINE
     Indication: PRURITUS
  2. IBUPROFEN. [Suspect]
     Active Substance: IBUPROFEN
     Indication: PRURITUS
  3. IBUPROFEN. [Suspect]
     Active Substance: IBUPROFEN
     Indication: RASH
     Dosage: UNK
  4. IBUPROFEN. [Suspect]
     Active Substance: IBUPROFEN
     Indication: ASTHMA
  5. EPINEPHRINE. [Suspect]
     Active Substance: EPINEPHRINE
     Indication: RASH
     Dosage: UNK
  6. IBUPROFEN. [Suspect]
     Active Substance: IBUPROFEN
     Indication: FLUSHING
  7. BENADRYL [Suspect]
     Active Substance: DIPHENHYDRAMINE HYDROCHLORIDE
     Indication: FLUSHING
  8. EPINEPHRINE. [Suspect]
     Active Substance: EPINEPHRINE
     Indication: FLUSHING
  9. BENADRYL [Suspect]
     Active Substance: DIPHENHYDRAMINE HYDROCHLORIDE
     Indication: ASTHMA
  10. BENADRYL [Suspect]
     Active Substance: DIPHENHYDRAMINE HYDROCHLORIDE
     Indication: RASH
     Dosage: UNK
  11. EPINEPHRINE. [Suspect]
     Active Substance: EPINEPHRINE
     Indication: ASTHMA
  12. BENADRYL [Suspect]
     Active Substance: DIPHENHYDRAMINE HYDROCHLORIDE
     Indication: PRURITUS

REACTIONS (1)
  - Drug ineffective [Unknown]
